FAERS Safety Report 5304622-5 (Version None)
Quarter: 2007Q2

REPORT INFORMATION
  Report Type: 
  Country: None (occurrence: None)
  Receive Date: 20070423
  Receipt Date: 20070412
  Transmission Date: 20071010
  Serious: Yes (Death, Life-Threatening)
  Sender: FDA-Public Use
  Company Number: FR-GLAXOSMITHKLINE-B0466284A

PATIENT
  Age: 69 Year
  Sex: Male

DRUGS (5)
  1. VENTOLIN [Suspect]
     Indication: RALES
     Dosage: 4PUFF PER DAY
     Route: 055
     Dates: start: 20070317, end: 20070321
  2. HEPARIN CALCIUM [Suspect]
     Dosage: 10IU3 TWICE PER DAY
     Route: 042
     Dates: start: 20070317, end: 20070321
  3. EUPRESSYL [Suspect]
     Route: 042
     Dates: start: 20070317, end: 20070321
  4. LASIX [Suspect]
     Dosage: 60MG TWICE PER DAY
     Route: 042
     Dates: start: 20070317, end: 20070321
  5. OXYGEN [Concomitant]
     Dates: start: 20070317

REACTIONS (9)
  - AKINESIA [None]
  - CEREBROVASCULAR ACCIDENT [None]
  - CONDITION AGGRAVATED [None]
  - EJECTION FRACTION DECREASED [None]
  - EPILEPSY [None]
  - PAIN [None]
  - PERICARDITIS [None]
  - PLEURAL EFFUSION [None]
  - RESPIRATORY ARREST [None]
